FAERS Safety Report 4865487-9 (Version None)
Quarter: 2005Q4

REPORT INFORMATION
  Report Type: 
  Country: None (occurrence: None)
  Receive Date: 20051223
  Receipt Date: 20051109
  Transmission Date: 20060501
  Serious: Yes (Hospitalization)
  Sender: FDA-Public Use
  Company Number: FR-ROCHE-424166

PATIENT
  Age: 76 Year
  Sex: Female
  Weight: 80 kg

DRUGS (6)
  1. CAPECITABINE [Suspect]
     Dosage: GIVEN FROM DAY 1 TO DAY 15.
     Route: 048
     Dates: start: 20051025, end: 20051031
  2. BEVACIZUMAB [Suspect]
     Dosage: GIVEN ON DAY 1.
     Route: 042
     Dates: start: 20051025
  3. OXALIPLATIN [Suspect]
     Dosage: GIVEN ON DAY 1.
     Route: 042
     Dates: start: 20051025
  4. PHENOBARBITAL [Concomitant]
  5. CLOBAZAM [Concomitant]
  6. LAMOTRIGINE [Concomitant]

REACTIONS (3)
  - ASTHENIA [None]
  - EPILEPSY [None]
  - PYREXIA [None]
